FAERS Safety Report 18024545 (Version 3)
Quarter: 2020Q3

REPORT INFORMATION
  Report Type: Report from Study
  Country: None (occurrence: US)
  Receive Date: 20200714
  Receipt Date: 20200831
  Transmission Date: 20201103
  Serious: Yes (Other)
  Sender: FDA-Public Use
  Company Number: US-ABBVIE-20K-163-3481506-00

PATIENT
  Age: 66 Year
  Sex: Female
  Weight: 55.84 kg

DRUGS (3)
  1. HUMIRA [Suspect]
     Active Substance: ADALIMUMAB
     Route: 058
     Dates: start: 20200724
  2. HUMIRA [Suspect]
     Active Substance: ADALIMUMAB
     Indication: PSORIATIC ARTHROPATHY
     Route: 058
     Dates: start: 2007, end: 201912
  3. HUMIRA [Suspect]
     Active Substance: ADALIMUMAB
     Indication: PSORIATIC ARTHROPATHY
     Route: 058
     Dates: start: 2020, end: 20200702

REACTIONS (16)
  - Fall [Recovered/Resolved]
  - Joint range of motion decreased [Not Recovered/Not Resolved]
  - Injection site pain [Recovered/Resolved]
  - Osteoporosis [Not Recovered/Not Resolved]
  - Dry eye [Recovering/Resolving]
  - Joint dislocation [Recovered/Resolved]
  - Menopause [Not Recovered/Not Resolved]
  - Cataract [Not Recovered/Not Resolved]
  - Pyrexia [Recovered/Resolved]
  - Musculoskeletal discomfort [Recovering/Resolving]
  - Osteopenia [Not Recovered/Not Resolved]
  - Arthralgia [Recovered/Resolved]
  - Inflammation [Recovered/Resolved]
  - Joint stiffness [Not Recovered/Not Resolved]
  - Wrist fracture [Recovered/Resolved]
  - Hypertension [Recovering/Resolving]

NARRATIVE: CASE EVENT DATE: 2007
